FAERS Safety Report 5761059-2 (Version None)
Quarter: 2008Q2

REPORT INFORMATION
  Report Type: 
  Country: None (occurrence: None)
  Receive Date: 20080606
  Receipt Date: 20071109
  Transmission Date: 20081010
  Serious: No
  Sender: FDA-Public Use
  Company Number: US-ASTRAZENECA-2007UW26097

PATIENT
  Sex: Female

DRUGS (1)
  1. PRILOSEC [Suspect]
     Indication: GASTROOESOPHAGEAL REFLUX DISEASE

REACTIONS (6)
  - ANOREXIA [None]
  - DYSPNOEA [None]
  - HYPERTROPHY OF TONGUE PAPILLAE [None]
  - MELAENA [None]
  - PHARYNGOLARYNGEAL PAIN [None]
  - PRODUCTIVE COUGH [None]
